FAERS Safety Report 25476785 (Version 1)
Quarter: 2025Q2

REPORT INFORMATION
  Report Type: Spontaneous
  Country: AU (occurrence: AU)
  Receive Date: 20250625
  Receipt Date: 20250625
  Transmission Date: 20250717
  Serious: Yes (Other)
  Sender: DR REDDYS
  Company Number: AU-AUS-AUS/2025/06/008910

PATIENT
  Age: 43 Year
  Sex: Female

DRUGS (3)
  1. IMATINIB [Suspect]
     Active Substance: IMATINIB
     Indication: Product used for unknown indication
     Route: 065
  2. DASATINIB [Suspect]
     Active Substance: DASATINIB
     Indication: Product used for unknown indication
     Route: 065
  3. NILOTINIB [Suspect]
     Active Substance: NILOTINIB
     Indication: Product used for unknown indication
     Route: 065

REACTIONS (8)
  - Cytopenia [Unknown]
  - Pancreatitis [Unknown]
  - Abdominal pain [Unknown]
  - Fatigue [Unknown]
  - Lipase increased [Unknown]
  - Myalgia [Unknown]
  - Nausea [Unknown]
  - Toxicity to various agents [Unknown]
